FAERS Safety Report 25431672 (Version 1)
Quarter: 2025Q2

REPORT INFORMATION
  Report Type: Spontaneous
  Country: US (occurrence: US)
  Receive Date: 20250613
  Receipt Date: 20250613
  Transmission Date: 20250717
  Serious: No
  Sender: ABBVIE
  Company Number: US-ABBVIE-6319385

PATIENT

DRUGS (1)
  1. RINVOQ [Suspect]
     Active Substance: UPADACITINIB
     Indication: Eczema
     Route: 048

REACTIONS (9)
  - Pain [Unknown]
  - Acne [Unknown]
  - Seborrhoea [Unknown]
  - Blood cholesterol increased [Unknown]
  - Weight increased [Unknown]
  - Fatigue [Unknown]
  - Skin burning sensation [Unknown]
  - Skin disorder [Unknown]
  - Pain [Unknown]
